FAERS Safety Report 23441342 (Version 1)
Quarter: 2024Q1

REPORT INFORMATION
  Report Type: Spontaneous
  Country: US (occurrence: US)
  Receive Date: 20240125
  Receipt Date: 20240125
  Transmission Date: 20240410
  Serious: No
  Sender: FDA-Public Use
  Company Number: US-SUN PHARMACEUTICAL INDUSTRIES LTD-2023R1-387532

PATIENT
  Sex: Female

DRUGS (1)
  1. GANIRELIX [Suspect]
     Active Substance: GANIRELIX
     Indication: Infertility
     Dosage: UNK, ONCE A DAY FOR 5 DAYS.
     Route: 065
     Dates: start: 20230331

REACTIONS (7)
  - Abdominal pain upper [Recovered/Resolved]
  - Injection site oedema [Recovered/Resolved]
  - Injection site irritation [Recovered/Resolved]
  - Injection site pain [Recovered/Resolved]
  - Rash [Recovered/Resolved]
  - Recalled product administered [Unknown]
  - Therapy cessation [Unknown]
